FAERS Safety Report 8760980 (Version 3)
Quarter: 2013Q1

REPORT INFORMATION
  Report Type: Report from Study
  Country: JP (occurrence: JP)
  Receive Date: 20120830
  Receipt Date: 20130128
  Transmission Date: 20140127
  Serious: Yes (Other)
  Sender: FDA-Public Use
  Company Number: JP-VERTEX PHARMACEUTICAL INC.-AE-2012-005595

PATIENT
  Age: 65 Year
  Sex: Male

DRUGS (16)
  1. VX-950 (TELAPREVIR) [Suspect]
     Indication: CHRONIC HEPATITIS C
     Dosage: 2250 MG, QD
     Route: 048
     Dates: start: 20120229, end: 20120327
  2. VX-950 (TELAPREVIR) [Suspect]
     Dosage: 1500 MG, QD
     Route: 048
     Dates: start: 20120328, end: 20120516
  3. PEGINTRON [Suspect]
     Indication: CHRONIC HEPATITIS C
     Dosage: 1.5 ?G/KG, QW
     Route: 058
     Dates: start: 20120229, end: 20120808
  4. RIBAVIRIN [Concomitant]
     Dosage: 600 MG, QD
     Route: 048
     Dates: start: 20120229, end: 20120411
  5. RIBAVIRIN [Concomitant]
     Dosage: 200 MG, QD
     Route: 048
     Dates: start: 20120412, end: 20120612
  6. RIBAVIRIN [Concomitant]
     Dosage: 400 MG, QD
     Route: 048
     Dates: start: 20120613, end: 20120619
  7. RIBAVIRIN [Concomitant]
     Dosage: 600 MG, QD
     Route: 048
     Dates: start: 20120620, end: 20120814
  8. ALOSITOL [Concomitant]
     Dosage: 200 MG, QD
     Route: 048
     Dates: start: 20120303
  9. VICCLOX [Concomitant]
     Dosage: 750 MG, QD
     Route: 042
     Dates: start: 20120305, end: 20120311
  10. CLARITIN [Concomitant]
     Dosage: 10 MG, QD
     Route: 048
     Dates: start: 20120305, end: 20120814
  11. ALLEGRA [Concomitant]
     Dosage: 60 MG, QD
     Route: 048
     Dates: start: 20120305
  12. ALLEGRA [Concomitant]
     Dosage: 120 MG, QD
     Route: 048
  13. MAGMITT [Concomitant]
     Dosage: 1000 MG, QD
     Route: 048
     Dates: start: 20120314
  14. METHYLCOBAL [Concomitant]
     Dosage: 1500 ?G, QD
     Route: 048
     Dates: start: 20120308, end: 20120403
  15. METHYLCOBAL [Concomitant]
     Dosage: UNK
  16. SLOW K [Suspect]
     Dosage: 600 MG, QD
     Route: 048
     Dates: start: 20120404, end: 20120814

REACTIONS (5)
  - Malaise [Recovered/Resolved]
  - Eczema [Recovered/Resolved]
  - Decreased appetite [Recovered/Resolved]
  - Retinal haemorrhage [Recovered/Resolved]
  - Hyperuricaemia [Recovered/Resolved]
